FAERS Safety Report 7359142-3 (Version None)
Quarter: 2011Q1

REPORT INFORMATION
  Report Type: 
  Country: None (occurrence: None)
  Receive Date: 20110317
  Receipt Date: 20110309
  Transmission Date: 20110831
  Serious: Yes (Life-Threatening, Hospitalization)
  Sender: FDA-Public Use
  Company Number: JP-ASTRAZENECA-2010SE29069

PATIENT
  Age: 72 Year
  Sex: Male

DRUGS (4)
  1. TENORMIN [Concomitant]
     Route: 048
     Dates: start: 20090101
  2. WARFARIN [Concomitant]
     Route: 048
  3. BLOPRESS [Suspect]
     Indication: PROPHYLAXIS
     Route: 048
     Dates: start: 20090201, end: 20090529
  4. SUNRYTHM [Concomitant]
     Route: 065

REACTIONS (1)
  - INAPPROPRIATE ANTIDIURETIC HORMONE SECRETION [None]
